FAERS Safety Report 10495211 (Version 1)
Quarter: 2014Q3

REPORT INFORMATION
  Report Type: Spontaneous
  Country: US (occurrence: None)
  Receive Date: 20140815
  Receipt Date: 20140815
  Transmission Date: 20150326
  Serious: Yes (Hospitalization, Other)
  Sender: FDA-Public Use
  Company Number: ADR-2007-4300

PATIENT
  Sex: Female

DRUGS (6)
  1. LIORESAL [Suspect]
     Active Substance: BACLOFEN
     Indication: MUSCLE SPASTICITY
     Dosage: 99.9 MCG/DAY; SEE B5
     Dates: start: 20070130, end: 20140107
  2. AMPYRA [Suspect]
     Active Substance: DALFAMPRIDINE
  3. PROVIGIL [Suspect]
     Active Substance: MODAFINIL
  4. DESMOPRESSIN [Suspect]
     Active Substance: DESMOPRESSIN
  5. TYSABRI [Suspect]
     Active Substance: NATALIZUMAB
  6. DETROL LA [Suspect]
     Active Substance: TOLTERODINE TARTRATE

REACTIONS (2)
  - Multiple sclerosis relapse [None]
  - No therapeutic response [None]
